FAERS Safety Report 5123078-9 (Version None)
Quarter: 2006Q4

REPORT INFORMATION
  Report Type: 
  Country: None (occurrence: None)
  Receive Date: 20061005
  Receipt Date: 20060927
  Transmission Date: 20070319
  Serious: Yes (Other)
  Sender: FDA-Public Use
  Company Number: 2006105912

PATIENT
  Age: 68 Year
  Sex: Female
  Weight: 72.5755 kg

DRUGS (6)
  1. SUDAFED PE SEVERE COLD CAPLET [Suspect]
     Indication: NASOPHARYNGITIS
     Dosage: 1 TABLET ONCE, ORAL
     Route: 048
     Dates: start: 20060830, end: 20060830
  2. ATORVASTATIN CALCIUM [Concomitant]
  3. ALPRAZOLAM [Concomitant]
  4. NAPROXEN [Concomitant]
  5. IBUPROFEN [Concomitant]
  6. DYAZIDE [Concomitant]

REACTIONS (8)
  - DRUG HYPERSENSITIVITY [None]
  - DRY SKIN [None]
  - NAIL BED TENDERNESS [None]
  - NAIL DISORDER [None]
  - ONYCHOMADESIS [None]
  - SKIN EXFOLIATION [None]
  - SKIN IRRITATION [None]
  - VISION BLURRED [None]
